FAERS Safety Report 8345736-5 (Version None)
Quarter: 2012Q2

REPORT INFORMATION
  Report Type: 
  Country: None (occurrence: None)
  Receive Date: 20120508
  Receipt Date: 20120425
  Transmission Date: 20120825
  Serious: Yes (Hospitalization, Other)
  Sender: FDA-Public Use
  Company Number: US-ELI_LILLY_AND_COMPANY-US201011002411

PATIENT
  Sex: Female

DRUGS (17)
  1. FORTEO [Suspect]
     Dosage: 20 UG, QD
     Route: 065
  2. OXYCODONE HCL [Concomitant]
  3. FORTEO [Suspect]
     Indication: OSTEOPOROSIS
     Dosage: 20 UG, QD
     Route: 065
     Dates: start: 20101101
  4. FORTEO [Suspect]
     Dosage: 20 UG, QD
     Dates: end: 20120130
  5. FORTEO [Suspect]
     Dosage: 20 UG, QD
  6. FORTEO [Suspect]
     Dosage: 20 UG, QD
     Route: 065
  7. ZYRTEC [Concomitant]
     Dosage: 10 MG, QD
  8. CLONAZEPAM [Concomitant]
     Dosage: 0.5 MG, QD
  9. FORTEO [Suspect]
     Dosage: 20 UG, QD
     Dates: start: 20120312
  10. FORTEO [Suspect]
     Dosage: 20 UG, QD
  11. KEPPRA [Concomitant]
     Dosage: 500 MG, BID
  12. GABAPENTIN [Concomitant]
     Dosage: 400 MG, QD
  13. FLUOXETINE [Concomitant]
     Dosage: 40 MG, UNK
  14. FORTEO [Suspect]
     Dosage: 20 UG, QD
  15. TYLENOL W/ CODEINE [Concomitant]
  16. FORTEO [Suspect]
     Dosage: 20 UG, QD
     Route: 065
     Dates: end: 20110225
  17. VITAMIN D [Concomitant]
     Dosage: 50000 IU, WEEKLY (1/W)

REACTIONS (21)
  - ESCHERICHIA URINARY TRACT INFECTION [None]
  - URINARY TRACT INFECTION ENTEROCOCCAL [None]
  - OEDEMA PERIPHERAL [None]
  - NEPHROLITHIASIS [None]
  - URETHRAL ATROPHY [None]
  - PYREXIA [None]
  - NAUSEA [None]
  - THORACIC VERTEBRAL FRACTURE [None]
  - PRURITUS GENERALISED [None]
  - DYSSTASIA [None]
  - CONSTIPATION [None]
  - MUSCLE SPASMS [None]
  - GENERAL PHYSICAL HEALTH DETERIORATION [None]
  - INCOHERENT [None]
  - ASTHENIA [None]
  - DRUG DOSE OMISSION [None]
  - URETHRAL OBSTRUCTION [None]
  - INJECTION SITE DYSAESTHESIA [None]
  - URINARY INCONTINENCE [None]
  - SURGERY [None]
  - DIZZINESS [None]
